FAERS Safety Report 7157796-8 (Version None)
Quarter: 2010Q4

REPORT INFORMATION
  Report Type: 
  Country: None (occurrence: None)
  Receive Date: 20101214
  Receipt Date: 20100212
  Transmission Date: 20110411
  Serious: Yes (Hospitalization)
  Sender: FDA-Public Use
  Company Number: US-ASTRAZENECA-2010SE06479

PATIENT
  Sex: Female
  Weight: 49.9 kg

DRUGS (5)
  1. CRESTOR [Suspect]
     Indication: BLOOD CHOLESTEROL INCREASED
     Route: 048
     Dates: start: 20091015, end: 20091231
  2. CRESTOR [Suspect]
     Route: 048
     Dates: start: 20091231, end: 20100114
  3. FOSAMAX [Concomitant]
  4. TRICOR [Concomitant]
  5. ARTHRITIS MEDICATION [Concomitant]

REACTIONS (2)
  - MYALGIA [None]
  - PANCREATITIS [None]
